FAERS Safety Report 5978808-0 (Version None)
Quarter: 2008Q4

REPORT INFORMATION
  Report Type: 
  Country: None (occurrence: None)
  Receive Date: 20081204
  Receipt Date: 20081124
  Transmission Date: 20090506
  Serious: Yes (Other)
  Sender: FDA-Public Use
  Company Number: PHHY2008CA29336

PATIENT

DRUGS (3)
  1. DIOVAN [Suspect]
     Dosage: 160 MG DAILY
     Route: 048
  2. CALCIUM CHANNEL BLOCKERS [Concomitant]
  3. DIURETICS [Concomitant]
     Dosage: UNK

REACTIONS (2)
  - DRUG INEFFECTIVE [None]
  - URINE ALBUMIN/CREATININE RATIO INCREASED [None]
